FAERS Safety Report 5309394-6 (Version None)
Quarter: 2007Q2

REPORT INFORMATION
  Report Type: 
  Country: None (occurrence: None)
  Receive Date: 20070423
  Receipt Date: 20070405
  Transmission Date: 20071010
  Serious: Yes (Hospitalization)
  Sender: FDA-Public Use
  Company Number: 2007VX001118

PATIENT
  Age: 75 Year
  Sex: Male

DRUGS (9)
  1. EFUDEX [Suspect]
     Indication: ACTINIC KERATOSIS
     Dosage: 5 PCT; BID; TDER
     Route: 062
  2. ACCURETIC [Concomitant]
  3. CRESTOR [Concomitant]
  4. SYNTHROID [Concomitant]
  5. NORVASC [Concomitant]
  6. ALLOPURINOL [Concomitant]
  7. ACETYLSALICYLIC ACID SRT [Concomitant]
  8. ATENOLOL [Concomitant]
  9. NASONEX [Concomitant]

REACTIONS (1)
  - ANGIOEDEMA [None]
